FAERS Safety Report 8467399-0 (Version None)
Quarter: 2012Q2

REPORT INFORMATION
  Report Type: 
  Country: None (occurrence: None)
  Receive Date: 20120626
  Receipt Date: 20120619
  Transmission Date: 20120825
  Serious: Yes (Hospitalization, Other)
  Sender: FDA-Public Use
  Company Number: PHHY2012BR054464

PATIENT
  Sex: Female

DRUGS (4)
  1. ACETYLSALICYLIC ACID SRT [Concomitant]
     Indication: CARDIAC DISORDER
     Dosage: 1 DF, DAILY
  2. LIPITOR [Concomitant]
     Indication: CARDIAC DISORDER
     Dosage: 1 DF, DAILY
  3. OMEPRAZOLE [Concomitant]
     Indication: HIATUS HERNIA
     Dosage: 1 DF, DAILY
  4. DIOVAN HCT [Suspect]
     Indication: HYPERTENSION

REACTIONS (5)
  - PARAESTHESIA [None]
  - ANAEMIA [None]
  - FEELING ABNORMAL [None]
  - ARTERIAL OCCLUSIVE DISEASE [None]
  - DIZZINESS [None]
